FAERS Safety Report 10275245 (Version 3)
Quarter: 2015Q1

REPORT INFORMATION
  Report Type: Report from Study
  Country: US (occurrence: US)
  Receive Date: 20140703
  Receipt Date: 20150128
  Transmission Date: 20150720
  Serious: Yes (Other)
  Sender: FDA-Public Use
  Company Number: US-BIOGENIDEC-2014BI062279

PATIENT
  Age: 48 Year
  Sex: Female

DRUGS (1)
  1. TECFIDERA [Suspect]
     Active Substance: DIMETHYL FUMARATE
     Indication: MULTIPLE SCLEROSIS
     Route: 048
     Dates: start: 201303, end: 20141224

REACTIONS (11)
  - Drug dose omission [Unknown]
  - White blood cell count decreased [Unknown]
  - Nephrolithiasis [Recovered/Resolved]
  - Gait disturbance [Unknown]
  - Syncope [Unknown]
  - Lymphocyte count decreased [Unknown]
  - Irritability [Unknown]
  - Central nervous system lesion [Unknown]
  - Memory impairment [Not Recovered/Not Resolved]
  - Trigeminal neuralgia [Unknown]
  - Flushing [Recovered/Resolved]

NARRATIVE: CASE EVENT DATE: 201308
